FAERS Safety Report 7007488-0 (Version None)
Quarter: 2010Q3

REPORT INFORMATION
  Report Type: 
  Country: None (occurrence: None)
  Receive Date: 20100914
  Receipt Date: 20100910
  Transmission Date: 20110219
  Serious: Yes (Life-Threatening)
  Sender: FDA-Public Use
  Company Number: 2010SP041819

PATIENT
  Age: 42 Year
  Sex: Female
  Weight: 65 kg

DRUGS (9)
  1. REMERON [Suspect]
     Indication: DEPRESSION
     Dosage: 15 MG; BID; PO
     Route: 048
     Dates: start: 20100512, end: 20100601
  2. PAXIL [Suspect]
     Indication: DEPRESSION
     Dosage: 10 MG; QD; PO, ; PO
     Route: 048
     Dates: start: 20061203, end: 20100601
  3. PAXIL [Suspect]
     Indication: DEPRESSION
     Dosage: 10 MG; QD; PO, ; PO
     Route: 048
     Dates: start: 20100707
  4. LORAZEPAM [Suspect]
     Indication: PANIC ATTACK
     Dosage: 1 MG; TID; PO
     Route: 048
     Dates: start: 20090422, end: 20100601
  5. SEPAZON (CLOXAZOLAM) [Suspect]
     Indication: PANIC ATTACK
     Dosage: 1 MG; TID; PO
     Route: 048
     Dates: start: 20090408, end: 20100601
  6. LEXOTAN (BROMAZEPAM) [Suspect]
     Indication: PANIC ATTACK
     Dosage: 2 MG; TID; PO
     Route: 048
     Dates: start: 20070701, end: 20100601
  7. ALLELOCK [Concomitant]
  8. BUSCOPAN [Concomitant]
  9. HALCION [Concomitant]

REACTIONS (9)
  - DEPRESSION [None]
  - DRUG WITHDRAWAL SYNDROME [None]
  - IMPULSIVE BEHAVIOUR [None]
  - INSOMNIA [None]
  - MULTIPLE DRUG OVERDOSE INTENTIONAL [None]
  - PANIC ATTACK [None]
  - PHYTOTHERAPY [None]
  - SKIN LACERATION [None]
  - SUICIDE ATTEMPT [None]
